FAERS Safety Report 25671261 (Version 1)
Quarter: 2025Q3

REPORT INFORMATION
  Report Type: Spontaneous
  Country: US (occurrence: None)
  Receive Date: 20250811
  Receipt Date: 20250811
  Transmission Date: 20251020
  Serious: Yes (Disabling)
  Sender: FDA-CTU
  Company Number: None

PATIENT
  Age: 75 Year
  Sex: Female
  Weight: 50.8 kg

DRUGS (5)
  1. VYALEV [Suspect]
     Active Substance: FOSCARBIDOPA\FOSLEVODOPA
  2. CARBIDOPA\LEVODOPA [Concomitant]
     Active Substance: CARBIDOPA\LEVODOPA
  3. DULOXETINE [Concomitant]
     Active Substance: DULOXETINE
  4. lorazipam [Concomitant]
  5. NUPLAZID [Concomitant]
     Active Substance: PIMAVANSERIN TARTRATE

REACTIONS (5)
  - Device failure [None]
  - Device malfunction [None]
  - Wrong technique in product usage process [None]
  - Extra dose administered [None]
  - Confusional state [None]

NARRATIVE: CASE EVENT DATE: 20250803
